FAERS Safety Report 6890560-3 (Version None)
Quarter: 2010Q3

REPORT INFORMATION
  Report Type: 
  Country: None (occurrence: None)
  Receive Date: 20100731
  Receipt Date: 20081125
  Transmission Date: 20110219
  Serious: Yes (Other)
  Sender: FDA-Public Use
  Company Number: US-PFIZER INC-2008099849

PATIENT
  Sex: Female
  Weight: 90 kg

DRUGS (2)
  1. LIPITOR [Suspect]
     Dates: start: 20050101, end: 20080101
  2. CRESTOR [Suspect]
     Dates: start: 20080101

REACTIONS (2)
  - MYALGIA [None]
  - WEIGHT INCREASED [None]
